FAERS Safety Report 9867283 (Version 2)
Quarter: 2014Q1

REPORT INFORMATION
  Report Type: Report from Study
  Country: US (occurrence: US)
  Receive Date: 20140204
  Receipt Date: 20140212
  Transmission Date: 20141002
  Serious: Yes (Life-Threatening, Hospitalization)
  Sender: FDA-Public Use
  Company Number: US-CELGENEUS-163-21880-14014529

PATIENT
  Age: 71 Year
  Sex: Male
  Weight: 78.3 kg

DRUGS (27)
  1. REVLIMID [Suspect]
     Indication: PLASMA CELL MYELOMA
     Dosage: 25 MILLIGRAM
     Route: 048
     Dates: start: 20120119, end: 20130125
  2. REVLIMID [Suspect]
     Dosage: 15 MILLIGRAM
     Route: 048
     Dates: start: 20130126, end: 20140115
  3. CARFILZOMIB [Suspect]
     Indication: PLASMA CELL MYELOMA
     Dosage: 38 MILLIGRAM
     Route: 065
     Dates: start: 20120119, end: 20120120
  4. CARFILZOMIB [Suspect]
     Dosage: 53 MILLIGRAM
     Route: 065
     Dates: start: 20120126, end: 20120203
  5. CARFILZOMIB [Suspect]
     Dosage: 52 MILLIGRAM
     Route: 065
     Dates: start: 20120216, end: 20120427
  6. CARFILZOMIB [Suspect]
     Dosage: 53 MILLIGRAM
     Route: 065
     Dates: start: 20120510, end: 20120725
  7. CARFILZOMIB [Suspect]
     Dosage: 52 MILLIGRAM
     Route: 065
     Dates: start: 20120806, end: 20120918
  8. CARFILZOMIB [Suspect]
     Dosage: 53 MILLIGRAM
     Route: 065
     Dates: start: 20121001, end: 20121211
  9. CARFILZOMIB [Suspect]
     Dosage: 53 MILLIGRAM
     Route: 065
     Dates: start: 20121227, end: 20130208
  10. CARFILZOMIB [Suspect]
     Dosage: 54 MILLIGRAM
     Route: 065
     Dates: start: 20130221, end: 20130308
  11. CARFILZOMIB [Suspect]
     Dosage: 53 MILLIGRAM
     Route: 065
     Dates: start: 20130321, end: 20130531
  12. DEXAMETHASONE [Suspect]
     Indication: PLASMA CELL MYELOMA
     Route: 065
     Dates: start: 20110826, end: 20111023
  13. DEXAMETHASONE [Suspect]
     Dosage: 40 MILLIGRAM
     Route: 065
     Dates: start: 20120119, end: 20140116
  14. ACYCLOVIR [Concomitant]
     Indication: ANTIVIRAL PROPHYLAXIS
     Dosage: 800 MILLIGRAM
     Route: 048
     Dates: start: 201108
  15. B12 [Concomitant]
     Indication: ANAEMIA PROPHYLAXIS
     Dosage: 1200 MICROGRAM
     Route: 048
     Dates: start: 2008
  16. ASA [Concomitant]
     Indication: ANTICOAGULANT THERAPY
     Dosage: 81 MILLIGRAM
     Route: 048
     Dates: start: 199706
  17. ASA [Concomitant]
     Indication: ANTIPLATELET THERAPY
  18. FELODIPINE [Concomitant]
     Indication: HYPERTENSION
     Dosage: 5 MILLIGRAM
     Route: 048
     Dates: start: 1997
  19. GABAPENTIN [Concomitant]
     Indication: NEURALGIA
     Dosage: 300 MILLIGRAM
     Route: 048
     Dates: start: 201112
  20. GLICLAZIDE [Concomitant]
     Indication: BLOOD GLUCOSE INCREASED
     Dosage: 160 MILLIGRAM
     Route: 048
     Dates: start: 201108
  21. LANSOPRAZOLE [Concomitant]
     Indication: PROPHYLAXIS AGAINST GASTROINTESTINAL ULCER
     Dosage: 15 MILLIGRAM
     Route: 048
     Dates: start: 20120118
  22. LIPITOR [Concomitant]
     Indication: HYPERLIPIDAEMIA
     Dosage: 20 MILLIGRAM
     Route: 048
     Dates: start: 199706
  23. LOVENOX [Concomitant]
     Indication: DEEP VEIN THROMBOSIS
     Dosage: 100 MILLIGRAM
     Route: 058
     Dates: start: 20130203, end: 20140120
  24. METOPROLOL [Concomitant]
     Indication: ANGINA PECTORIS
     Dosage: 150 MILLIGRAM
     Route: 048
     Dates: start: 199706
  25. NEUPOGEN [Concomitant]
     Indication: PROPHYLAXIS
     Route: 058
     Dates: start: 20120731
  26. OXAZEPAM [Concomitant]
     Indication: SLEEP DISORDER
     Route: 048
     Dates: start: 201112
  27. SLOW K [Concomitant]
     Indication: BLOOD POTASSIUM DECREASED
     Dosage: 72 MILLIEQUIVALENTS
     Route: 048
     Dates: start: 20130417

REACTIONS (1)
  - Plasma cell leukaemia [Not Recovered/Not Resolved]
